FAERS Safety Report 11788128 (Version 14)
Quarter: 2023Q4

REPORT INFORMATION
  Report Type: Other
  Country: CA (occurrence: None)
  Receive Date: 20151201
  Receipt Date: 20231212
  Transmission Date: 20240110
  Serious: Yes (Hospitalization, Other)
  Sender: FDA-Public Use
  Company Number: CA-ROCHE-1513163

PATIENT
  Age: 61 Year
  Sex: Male
  Weight: 83.9 kg

DRUGS (9)
  1. ACTEMRA [Suspect]
     Active Substance: TOCILIZUMAB
     Indication: Rheumatoid arthritis
     Route: 058
     Dates: start: 20141111
  2. ACTEMRA [Suspect]
     Active Substance: TOCILIZUMAB
     Route: 058
     Dates: start: 20171019
  3. ACTEMRA [Suspect]
     Active Substance: TOCILIZUMAB
     Dosage: AUTOINJECTOR
     Route: 058
     Dates: start: 2012
  4. ACTEMRA [Suspect]
     Active Substance: TOCILIZUMAB
     Route: 058
     Dates: start: 2023
  5. WARFARIN [Suspect]
     Active Substance: WARFARIN
     Indication: Product used for unknown indication
     Route: 065
  6. PREDNISONE [Concomitant]
     Active Substance: PREDNISONE
  7. SPIRIVA [Concomitant]
     Active Substance: TIOTROPIUM BROMIDE MONOHYDRATE
  8. VENTOLIN [Concomitant]
     Active Substance: ALBUTEROL SULFATE
  9. SYMBICORT [Concomitant]
     Active Substance: BUDESONIDE\FORMOTEROL FUMARATE DIHYDRATE

REACTIONS (36)
  - Spinal fracture [Unknown]
  - Back pain [Unknown]
  - Muscle spasms [Unknown]
  - Pneumonia [Recovered/Resolved]
  - International normalised ratio increased [Unknown]
  - Peripheral nerve lesion [Unknown]
  - Wrist deformity [Unknown]
  - Bone disorder [Unknown]
  - Upper motor neurone lesion [Unknown]
  - Sinus congestion [Recovering/Resolving]
  - Vomiting [Recovered/Resolved]
  - Fatigue [Recovering/Resolving]
  - Decreased appetite [Not Recovered/Not Resolved]
  - Cough [Recovering/Resolving]
  - Influenza [Unknown]
  - Wheezing [Unknown]
  - Rash macular [Unknown]
  - Gastrointestinal disorder [Unknown]
  - Arthralgia [Unknown]
  - Peripheral swelling [Unknown]
  - Drug ineffective [Unknown]
  - Cyst [Unknown]
  - Rheumatoid arthritis [Unknown]
  - Herpes zoster [Unknown]
  - Influenza [Unknown]
  - Nasopharyngitis [Unknown]
  - Lower respiratory tract infection [Unknown]
  - Oropharyngeal pain [Unknown]
  - Cataract [Unknown]
  - Product dose omission issue [Unknown]
  - Device malfunction [Unknown]
  - Laryngitis [Unknown]
  - Seasonal allergy [Unknown]
  - Dust allergy [Unknown]
  - Musculoskeletal stiffness [Unknown]
  - Hernia [Recovered/Resolved]

NARRATIVE: CASE EVENT DATE: 20141201
